FAERS Safety Report 9857342 (Version 2)
Quarter: 2014Q1

REPORT INFORMATION
  Report Type: Report from Study
  Country: US (occurrence: US)
  Receive Date: 20140130
  Receipt Date: 20140318
  Transmission Date: 20141002
  Serious: Yes (Hospitalization, Other)
  Sender: FDA-Public Use
  Company Number: US-BRISTOL-MYERS SQUIBB COMPANY-20049979

PATIENT
  Age: 56 Year
  Sex: Male
  Weight: 68 kg

DRUGS (9)
  1. NIVOLUMAB [Suspect]
     Indication: METASTATIC MALIGNANT MELANOMA
     Dosage: 1 DF: 204 (UNIT NOS)?189 MG
     Route: 042
     Dates: start: 20131204, end: 20131219
  2. IPILIMUMAB [Suspect]
     Indication: METASTATIC MALIGNANT MELANOMA
     Dates: start: 20130722
  3. ATARAX [Concomitant]
     Dates: start: 20130814
  4. HYPROMELLOSE [Concomitant]
     Dosage: OPHTHALMIC SOLUTION
     Route: 047
     Dates: start: 20130814
  5. TRAMADOL [Concomitant]
     Dates: start: 20130904
  6. ALPRAZOLAM [Concomitant]
     Dates: start: 20130925
  7. ACETAMINOPHEN + HYDROCODONE [Concomitant]
     Dates: start: 20130925
  8. FERROUS FUMARATE [Concomitant]
     Dates: start: 20131024
  9. LAXATIVES [Concomitant]
     Dates: start: 20131024

REACTIONS (2)
  - Dyspnoea [Recovering/Resolving]
  - Pneumonitis [Not Recovered/Not Resolved]
